FAERS Safety Report 25120146 (Version 1)
Quarter: 2025Q1

REPORT INFORMATION
  Report Type: Spontaneous
  Country: RU (occurrence: RU)
  Receive Date: 20250325
  Receipt Date: 20250325
  Transmission Date: 20250409
  Serious: Yes (Hospitalization, Other)
  Sender: BRISTOL-MYERS SQUIBB COMPANY
  Company Number: RU-BRISTOL-MYERS SQUIBB COMPANY-2025-041261

PATIENT
  Age: 76 Year

DRUGS (3)
  1. ELIQUIS [Suspect]
     Active Substance: APIXABAN
     Indication: Atrial fibrillation
  2. METOPROLOL [Concomitant]
     Active Substance: METOPROLOL
     Indication: Product used for unknown indication
  3. ATORVASTATIN [Concomitant]
     Active Substance: ATORVASTATIN
     Indication: Product used for unknown indication

REACTIONS (6)
  - Treatment noncompliance [Unknown]
  - Cardiac failure [Unknown]
  - Rales [Unknown]
  - Hypertension [Unknown]
  - General physical health deterioration [Unknown]
  - Arthralgia [Unknown]
